FAERS Safety Report 5927922-4 (Version None)
Quarter: 2008Q4

REPORT INFORMATION
  Report Type: 
  Country: None (occurrence: None)
  Receive Date: 20081022
  Receipt Date: 20081022
  Transmission Date: 20090506
  Serious: Yes (Life-Threatening, Hospitalization)
  Sender: FDA-Public Use
  Company Number: None

PATIENT
  Sex: Female
  Weight: 77.1115 kg

DRUGS (2)
  1. RITUXIMAB UNKNOWN UNKNOWN [Suspect]
     Indication: NON-HODGKIN'S LYMPHOMA
     Dosage: SCHEDULED- TO BE INTRAMENINGEAL  : 3 TIMES EVERY 6 MONTHS
     Route: 029
     Dates: start: 20070801, end: 20070811
  2. RITUXIMAB UNKNOWN UNKNOWN [Suspect]
     Indication: NON-HODGKIN'S LYMPHOMA
     Dosage: SCHEDULED- TO BE INTRAMENINGEAL  : 3 TIMES EVERY 6 MONTHS
     Route: 029
     Dates: start: 20070811, end: 20070812

REACTIONS (1)
  - ORGANISING PNEUMONIA [None]
